FAERS Safety Report 18570852 (Version 2)
Quarter: 2021Q1

REPORT INFORMATION
  Report Type: Spontaneous
  Country: US (occurrence: US)
  Receive Date: 20201202
  Receipt Date: 20210223
  Transmission Date: 20210419
  Serious: No
  Sender: FDA-Public Use
  Company Number: US-ROCHE-2684026

PATIENT
  Sex: Female

DRUGS (1)
  1. EVRYSDI [Suspect]
     Active Substance: RISDIPLAM
     Indication: SPINAL MUSCULAR ATROPHY
     Dosage: ONG ? UNKNOWN
     Route: 065

REACTIONS (8)
  - Headache [Recovering/Resolving]
  - Diarrhoea [Recovered/Resolved]
  - Nausea [Recovering/Resolving]
  - Muscular weakness [Unknown]
  - Muscle spasms [Unknown]
  - Myalgia [Unknown]
  - Paraesthesia [Unknown]
  - Fatigue [Unknown]
